FAERS Safety Report 8178023-9 (Version None)
Quarter: 2012Q1

REPORT INFORMATION
  Report Type: 
  Country: None (occurrence: None)
  Receive Date: 20120301
  Receipt Date: 20120223
  Transmission Date: 20120608
  Serious: Yes (Life-Threatening, Hospitalization, Disabling, Other)
  Sender: FDA-Public Use
  Company Number: GB-BAYER-200810751BNE

PATIENT
  Age: 77 Year
  Sex: Female

DRUGS (9)
  1. SIMVASTATIN [Interacting]
     Indication: HYPERCHOLESTEROLAEMIA
     Dosage: 40 MG (DAILY DOSE), QD, ORAL
     Route: 048
  2. LEVOTHYROXINE SODIUM [Concomitant]
     Dosage: 100 ?G (DAILY DOSE), QD,
  3. ISOSORBIDE MONONITRATE [Concomitant]
  4. NICORANDIL [Concomitant]
  5. PINDOLOL [Concomitant]
     Dosage: 2.5 MG (DAILY DOSE), QD,
  6. CIPROFLOXACIN [Suspect]
     Indication: URINARY TRACT INFECTION
     Dosage: 2 DF (DAILY DOSE), , ORAL
     Route: 048
  7. FUROSEMIDE [Concomitant]
     Dosage: 40 MG (DAILY DOSE), QD,
  8. ASPIRIN [Concomitant]
     Dosage: 75 MG (DAILY DOSE), ,
  9. CIMETIDINE [Concomitant]
     Dosage: 400 MG (DAILY DOSE), QD,

REACTIONS (6)
  - MUSCULAR WEAKNESS [None]
  - MYALGIA [None]
  - DRUG INTERACTION [None]
  - RHABDOMYOLYSIS [None]
  - CHROMATURIA [None]
  - BLOOD CREATINE PHOSPHOKINASE INCREASED [None]
